FAERS Safety Report 23218990 (Version 3)
Quarter: 2024Q1

REPORT INFORMATION
  Report Type: Spontaneous
  Country: JP (occurrence: None)
  Receive Date: 20231122
  Receipt Date: 20240130
  Transmission Date: 20240410
  Serious: Yes (Death)
  Sender: FDA-Public Use
  Company Number: 2023A263325

PATIENT
  Age: 949 Month
  Sex: Male
  Weight: 52 kg

DRUGS (20)
  1. ONDEXXYA [Suspect]
     Active Substance: ANDEXANET ALFA
     Indication: Upper gastrointestinal haemorrhage
     Dosage: 9 IU
     Route: 042
     Dates: start: 20231007, end: 20231007
  2. EDOXABAN TOSYLATE [Suspect]
     Active Substance: EDOXABAN TOSYLATE
     Indication: Cerebral infarction
     Route: 048
     Dates: end: 20231007
  3. CARBAZOCHROME SODIUM SULFONATE [Suspect]
     Active Substance: CARBAZOCHROME SODIUM SULFONATE
     Indication: Duodenal ulcer
     Route: 042
     Dates: start: 20231009, end: 20231009
  4. TRANEXAMIC ACID [Suspect]
     Active Substance: TRANEXAMIC ACID
     Indication: Duodenal ulcer
     Route: 042
     Dates: start: 20231009, end: 20231009
  5. ALENDRONATE SODIUM [Concomitant]
     Active Substance: ALENDRONATE SODIUM
     Route: 048
  6. MITIGLINIDE CALCIUM HYDRATE [Concomitant]
     Active Substance: MITIGLINIDE CALCIUM HYDRATE
     Route: 048
  7. PITAVASTATIN CALCIUM [Concomitant]
     Active Substance: PITAVASTATIN CALCIUM
     Route: 048
  8. OLMESARTAN [Concomitant]
     Active Substance: OLMESARTAN
     Route: 048
  9. PREDNISOLONE [Concomitant]
     Active Substance: PREDNISOLONE
     Route: 048
  10. VADADUSTAT [Concomitant]
     Active Substance: VADADUSTAT
     Route: 048
  11. AMLODIPINE [Concomitant]
     Active Substance: AMLODIPINE BESYLATE
     Route: 048
  12. FEXOFENADINE HYDROCHLORIDE [Concomitant]
     Active Substance: FEXOFENADINE HYDROCHLORIDE
     Route: 048
  13. RYZODEG 70/30 [Concomitant]
     Active Substance: INSULIN ASPART\INSULIN DEGLUDEC
     Dosage: 5 IU IN THE MORNING
  14. VOGLIBOSE [Concomitant]
     Active Substance: VOGLIBOSE
     Route: 048
  15. OMEPRAZOLE [Concomitant]
     Active Substance: OMEPRAZOLE
     Indication: Duodenal ulcer
     Route: 042
     Dates: start: 20231007, end: 20231008
  16. CEFTRIAXONE [Concomitant]
     Active Substance: CEFTRIAXONE\CEFTRIAXONE SODIUM
     Indication: Duodenal ulcer
     Route: 042
     Dates: start: 20231007, end: 20231008
  17. MEYLON 84-P [Concomitant]
     Indication: Metabolic acidosis
     Dosage: 0.5 IU EVERY DAY
     Route: 042
     Dates: start: 20231007, end: 20231009
  18. CARBAZOCHROME SULFONATE NA [Concomitant]
     Indication: Duodenal ulcer
     Route: 042
     Dates: start: 20231009, end: 20231009
  19. TRANEXAMIC ACID [Concomitant]
     Active Substance: TRANEXAMIC ACID
     Indication: Duodenal ulcer
     Route: 042
     Dates: start: 20231009, end: 20231009
  20. HUMULIN R [Concomitant]
     Active Substance: INSULIN HUMAN
     Indication: Hyperglycaemia
     Dosage: 2 IU
     Route: 058
     Dates: start: 20231007, end: 20231007

REACTIONS (3)
  - Thrombosis [Fatal]
  - Duodenal ulcer haemorrhage [Fatal]
  - Intestinal ischaemia [Fatal]

NARRATIVE: CASE EVENT DATE: 20231001
